FAERS Safety Report 9952114 (Version 1)
Quarter: 2014Q1

REPORT INFORMATION
  Report Type: Report from Study
  Country: US (occurrence: US)
  Receive Date: 20140304
  Receipt Date: 20140304
  Transmission Date: 20141002
  Serious: No
  Sender: FDA-Public Use
  Company Number: US-ABBVIE-13P-163-1073392-00

PATIENT
  Sex: Male

DRUGS (5)
  1. HUMIRA [Suspect]
     Indication: PSORIATIC ARTHROPATHY
     Route: 058
     Dates: start: 200807, end: 200911
  2. HUMIRA [Suspect]
     Indication: PSORIASIS
     Route: 058
     Dates: start: 201006, end: 201008
  3. HUMIRA [Suspect]
     Route: 058
     Dates: start: 201101, end: 201103
  4. HUMIRA [Suspect]
     Route: 058
     Dates: start: 201106, end: 201108
  5. HUMIRA [Suspect]
     Route: 058
     Dates: start: 201212

REACTIONS (1)
  - Psoriasis [Not Recovered/Not Resolved]
